FAERS Safety Report 4746957-0 (Version None)
Quarter: 2005Q3

REPORT INFORMATION
  Report Type: 
  Country: None (occurrence: None)
  Receive Date: 20050817
  Receipt Date: 20050805
  Transmission Date: 20060218
  Serious: Yes (Hospitalization)
  Sender: FDA-Public Use
  Company Number: US-JNJFOC-20050802206

PATIENT
  Sex: Female

DRUGS (4)
  1. CONCERTA [Suspect]
     Indication: DRUG USE FOR UNKNOWN INDICATION
     Route: 048
     Dates: start: 20030501
  2. ZOLOFT [Concomitant]
  3. BIRTH CONTROL [Concomitant]
  4. ASCORBIC ACID [Concomitant]

REACTIONS (1)
  - ULCER HAEMORRHAGE [None]
